FAERS Safety Report 17391053 (Version 1)
Quarter: 2020Q1

REPORT INFORMATION
  Report Type: Report from Study
  Country: US (occurrence: US)
  Receive Date: 20200207
  Receipt Date: 20200207
  Transmission Date: 20200409
  Serious: Yes (Death, Life-Threatening, Other)
  Sender: FDA-Public Use
  Company Number: US-GLAXOSMITHKLINE-US2020GSK016409

PATIENT
  Age: 68 Year
  Sex: Female

DRUGS (4)
  1. ATOVAQUONE. [Suspect]
     Active Substance: ATOVAQUONE
     Indication: PROPHYLAXIS
     Dosage: 750 MG DAILY
  2. TRIMETHOPRIM + SULFAMETHOXAZOL [Suspect]
     Active Substance: SULFAMERAZINE SODIUM\TRIMETHOPRIM
     Indication: PROPHYLAXIS
     Dosage: UNK
  3. ATG [Concomitant]
     Active Substance: LAPINE T-LYMPHOCYTE IMMUNE GLOBULIN
     Indication: T-CELL DEPLETION
     Dosage: UNK
  4. TACROLIMUS. [Concomitant]
     Active Substance: TACROLIMUS
     Indication: IMMUNOSUPPRESSION
     Dosage: UNK

REACTIONS (17)
  - Pancytopenia [Unknown]
  - Lymphopenia [Unknown]
  - Disease recurrence [Fatal]
  - Encephalopathy [Unknown]
  - Infection reactivation [Unknown]
  - Photophobia [Unknown]
  - Eye pain [Unknown]
  - Ischaemic stroke [Fatal]
  - Central nervous system lesion [Unknown]
  - Treatment failure [Unknown]
  - Myelodysplastic syndrome [Fatal]
  - Intentional underdose [Unknown]
  - Cerebral toxoplasmosis [Unknown]
  - Nuchal rigidity [Unknown]
  - Drug intolerance [Unknown]
  - Cytomegalovirus viraemia [Unknown]
  - Mental disorder [Unknown]
